FAERS Safety Report 21146527 (Version 1)
Quarter: 2022Q3

REPORT INFORMATION
  Report Type: Spontaneous
  Country: DE (occurrence: DE)
  Receive Date: 20220729
  Receipt Date: 20220729
  Transmission Date: 20221026
  Serious: No
  Sender: FDA-Public Use
  Company Number: DE-ALKEM LABORATORIES LIMITED-DE-ALKEM-2021-06634

PATIENT
  Sex: Male

DRUGS (1)
  1. CEFUROXIME AXETIL [Suspect]
     Active Substance: CEFUROXIME AXETIL
     Indication: Lyme disease
     Dosage: CEFURAX 500 MG FILMTABLETTEN
     Dates: start: 202108, end: 202108

REACTIONS (1)
  - Hepatic enzyme increased [Not Recovered/Not Resolved]
